FAERS Safety Report 24338388 (Version 2)
Quarter: 2025Q3

REPORT INFORMATION
  Report Type: Spontaneous
  Country: US (occurrence: US)
  Receive Date: 20240919
  Receipt Date: 20250709
  Transmission Date: 20251020
  Serious: No
  Sender: SANOFI AVENTIS
  Company Number: US-SA-2024SA266906

PATIENT
  Age: 58 Year
  Sex: Female

DRUGS (6)
  1. DUPIXENT [Suspect]
     Active Substance: DUPILUMAB
     Indication: Asthma
     Route: 058
     Dates: start: 20240504
  2. DUPIXENT [Suspect]
     Active Substance: DUPILUMAB
     Dosage: 300 MG, QOW
     Route: 058
     Dates: start: 20240518
  3. ACCUNEB [Concomitant]
     Active Substance: ALBUTEROL SULFATE
  4. TYLENOL [Concomitant]
     Active Substance: ACETAMINOPHEN
  5. VICKS DAYQUIL [Concomitant]
     Active Substance: DEXTROMETHORPHAN HYDROBROMIDE\GUAIFENESIN
  6. SINGULAIR [Concomitant]
     Active Substance: MONTELUKAST SODIUM

REACTIONS (8)
  - COVID-19 [Unknown]
  - Dyspnoea [Unknown]
  - Oropharyngeal pain [Unknown]
  - Pain [Unknown]
  - Cough [Unknown]
  - Headache [Unknown]
  - Condition aggravated [Unknown]
  - Asthma [Unknown]

NARRATIVE: CASE EVENT DATE: 20240609
